FAERS Safety Report 26055938 (Version 1)
Quarter: 2025Q4

REPORT INFORMATION
  Report Type: Spontaneous
  Country: EU (occurrence: EU)
  Receive Date: 20251118
  Receipt Date: 20251118
  Transmission Date: 20260117
  Serious: Yes (Other)
  Sender: BRISTOL-MYERS SQUIBB COMPANY
  Company Number: None

PATIENT
  Age: 85 Year
  Sex: Male
  Weight: 71 kg

DRUGS (10)
  1. OPDIVO [Suspect]
     Active Substance: NIVOLUMAB
     Indication: Desmoplastic melanoma
     Route: 042
     Dates: start: 20230328, end: 20230912
  2. SKENAN [Suspect]
     Active Substance: MORPHINE SULFATE
     Indication: Cancer pain
     Dosage: 20 MG MORNING, 30 MG EVENING
     Route: 048
     Dates: start: 20230315, end: 202308
  3. CRESTOR [Concomitant]
     Active Substance: ROSUVASTATIN CALCIUM
     Indication: Product used for unknown indication
  4. SOTALOL HYDROCHLORIDE [Concomitant]
     Active Substance: SOTALOL HYDROCHLORIDE
     Indication: Product used for unknown indication
     Dosage: SCORED
  5. KARDEGIC [Concomitant]
     Active Substance: ASPIRIN DL-LYSINE
     Indication: Product used for unknown indication
  6. PERINDOPRIL [Concomitant]
     Active Substance: PERINDOPRIL
     Indication: Product used for unknown indication
  7. ESOMEPRAZOLE [Concomitant]
     Active Substance: ESOMEPRAZOLE
     Indication: Product used for unknown indication
  8. NALOXEGOL OXALATE [Concomitant]
     Active Substance: NALOXEGOL OXALATE
     Indication: Product used for unknown indication
  9. DOLIPRANE [Concomitant]
     Active Substance: ACETAMINOPHEN
     Indication: Product used for unknown indication
  10. MACROGOL (LAURIC ETHER) [Concomitant]
     Indication: Product used for unknown indication

REACTIONS (2)
  - Dry mouth [Not Recovered/Not Resolved]
  - Dry eye [Not Recovered/Not Resolved]

NARRATIVE: CASE EVENT DATE: 20230701
